FAERS Safety Report 4917247-8 (Version None)
Quarter: 2006Q1

REPORT INFORMATION
  Report Type: 
  Country: None (occurrence: None)
  Receive Date: 20060221
  Receipt Date: 20030605
  Transmission Date: 20060701
  Serious: Yes (Hospitalization, Other)
  Sender: FDA-Public Use
  Company Number: US-MERCK-0306USA00757

PATIENT
  Age: 55 Year
  Sex: Male
  Weight: 91 kg

DRUGS (12)
  1. VIOXX [Suspect]
     Indication: OSTEOARTHRITIS
     Route: 048
     Dates: start: 19990729, end: 20011201
  2. VIOXX [Suspect]
     Route: 048
     Dates: start: 19990729, end: 20011201
  3. VIOXX [Suspect]
     Route: 048
     Dates: start: 19990729, end: 20011201
  4. VIOXX [Suspect]
     Route: 048
     Dates: start: 19990729, end: 20011201
  5. CELEBREX [Concomitant]
     Route: 065
     Dates: start: 19990412, end: 19990502
  6. CELEBREX [Concomitant]
     Route: 048
     Dates: start: 19990503, end: 19990726
  7. PAXIL [Concomitant]
     Route: 065
     Dates: start: 19990727
  8. PAXIL [Concomitant]
     Route: 065
  9. PAXIL [Concomitant]
     Route: 065
     Dates: end: 19990913
  10. ELAVIL [Concomitant]
     Route: 048
  11. DARVOCET-N 50 [Concomitant]
     Route: 065
     Dates: start: 19990101
  12. VICODIN [Concomitant]
     Route: 065
     Dates: start: 19990101

REACTIONS (15)
  - ACUTE MYOCARDIAL INFARCTION [None]
  - AKINESIA [None]
  - ANGINA PECTORIS [None]
  - BLOOD PRESSURE INCREASED [None]
  - BURSITIS [None]
  - CONVULSION [None]
  - CORONARY ARTERY DISEASE [None]
  - CORONARY ARTERY OCCLUSION [None]
  - EJACULATION DISORDER [None]
  - FIBROMYALGIA [None]
  - OSTEOARTHRITIS [None]
  - OVERDOSE [None]
  - SHOULDER PAIN [None]
  - SLEEP DISORDER [None]
  - STENT OCCLUSION [None]
